FAERS Safety Report 9712400 (Version 1)
Quarter: 2013Q4

REPORT INFORMATION
  Report Type: Spontaneous
  Country: US (occurrence: US)
  Receive Date: 20131126
  Receipt Date: 20131126
  Transmission Date: 20140711
  Serious: No
  Sender: FDA-Public Use
  Company Number: US-BRISTOL-MYERS SQUIBB COMPANY-18871236

PATIENT
  Age: 61 Year
  Sex: Female

DRUGS (3)
  1. BYDUREON [Suspect]
     Dates: start: 20130426
  2. INSULIN [Concomitant]
     Dosage: FORMULATION:INSULIN 75/25
  3. METFORMIN HCL TABS [Concomitant]
     Dosage: 1DF:1TAB

REACTIONS (3)
  - Drug dose omission [Unknown]
  - Fibromyalgia [Unknown]
  - Somnolence [Unknown]
